FAERS Safety Report 8080213-0 (Version None)
Quarter: 2012Q1

REPORT INFORMATION
  Report Type: 
  Country: None (occurrence: None)
  Receive Date: 20120130
  Receipt Date: 20120123
  Transmission Date: 20120608
  Serious: Yes (Disabling)
  Sender: FDA-Public Use
  Company Number: JP-BAYER-2012-007621

PATIENT
  Age: 37 Year
  Sex: Female

DRUGS (1)
  1. YAZ [Suspect]
     Indication: DYSMENORRHOEA
     Dosage: 1 DF, UNK
     Route: 048
     Dates: start: 20111118, end: 20111226

REACTIONS (3)
  - TINNITUS [None]
  - DEAFNESS [None]
  - DIZZINESS [None]
